FAERS Safety Report 5685035-3 (Version None)
Quarter: 2008Q1

REPORT INFORMATION
  Report Type: 
  Country: None (occurrence: None)
  Receive Date: 20080328
  Receipt Date: 19980521
  Transmission Date: 20080703
  Serious: Yes (Death, Hospitalization)
  Sender: FDA-Public Use
  Company Number: US-ROCHE-99851

PATIENT
  Age: 79 Year
  Sex: Male
  Weight: 72.6 kg

DRUGS (1)
  1. TICLID [Suspect]
     Indication: DRUG USE FOR UNKNOWN INDICATION
     Route: 048
     Dates: start: 19970911, end: 19971008

REACTIONS (6)
  - DEATH [None]
  - DIZZINESS [None]
  - GASTROINTESTINAL PAIN [None]
  - HAEMATEMESIS [None]
  - HYPOAESTHESIA [None]
  - NAUSEA [None]
